FAERS Safety Report 4377183-5 (Version None)
Quarter: 2004Q2

REPORT INFORMATION
  Report Type: 
  Country: None (occurrence: None)
  Receive Date: 20040609
  Receipt Date: 20040227
  Transmission Date: 20050107
  Serious: No
  Sender: FDA-Public Use
  Company Number: 2004201526US

PATIENT
  Age: 90 Year
  Sex: Male
  Weight: 70.7 kg

DRUGS (5)
  1. BEXTRA [Suspect]
     Indication: RHEUMATOID ARTHRITIS
     Dosage: 20 MG, BID
  2. XALATAN [Concomitant]
  3. THYROID TAB [Concomitant]
  4. TRUSOPT [Concomitant]
  5. PILOCARPINE (PILOCARPINE) [Concomitant]

REACTIONS (1)
  - HALLUCINATION [None]
